FAERS Safety Report 21123002 (Version 2)
Quarter: 2022Q3

REPORT INFORMATION
  Report Type: Spontaneous
  Country: VN (occurrence: None)
  Receive Date: 20220724
  Receipt Date: 20220728
  Transmission Date: 20221027
  Serious: Yes (Hospitalization)
  Sender: FDA-Public Use
  Company Number: 2022A260579

PATIENT
  Sex: Female

DRUGS (4)
  1. LYNPARZA [Suspect]
     Active Substance: OLAPARIB
     Indication: Ovarian cancer
     Route: 048
  2. LYNPARZA [Suspect]
     Active Substance: OLAPARIB
     Indication: Ovarian cancer
     Route: 048
  3. LYNPARZA [Suspect]
     Active Substance: OLAPARIB
     Indication: Ovarian cancer
     Dosage: 100MG (2 TABLETS IN THE MORNING, 1 TABLET IN THE AFTERNOON)
     Route: 048
     Dates: start: 20220721
  4. LYNPARZA [Suspect]
     Active Substance: OLAPARIB
     Indication: Ovarian cancer
     Dosage: 100MG (2 TABLETS IN THE MORNING, 1 TABLET IN THE AFTERNOON)
     Route: 048
     Dates: start: 20220721

REACTIONS (3)
  - Facial paralysis [Unknown]
  - Lip swelling [Unknown]
  - Ascites [Unknown]
